FAERS Safety Report 23689844 (Version 1)
Quarter: 2024Q1

REPORT INFORMATION
  Report Type: Report from Study
  Country: IN (occurrence: IN)
  Receive Date: 20240331
  Receipt Date: 20240331
  Transmission Date: 20240409
  Serious: Yes (Other)
  Sender: FDA-Public Use
  Company Number: IN-002147023-NVSC2024IN041527

PATIENT
  Age: 49 Year
  Sex: Male

DRUGS (1)
  1. BROLUCIZUMAB [Suspect]
     Active Substance: BROLUCIZUMAB
     Indication: Choroidal neovascularisation
     Dosage: 0.05 ML, PRN
     Route: 047
     Dates: start: 20230811

REACTIONS (2)
  - Eye pruritus [Not Recovered/Not Resolved]
  - Off label use [Unknown]

NARRATIVE: CASE EVENT DATE: 20230811
